FAERS Safety Report 6259848-3 (Version None)
Quarter: 2009Q3

REPORT INFORMATION
  Report Type: 
  Country: None (occurrence: None)
  Receive Date: 20090708
  Receipt Date: 20090625
  Transmission Date: 20100115
  Serious: Yes (Hospitalization)
  Sender: FDA-Public Use
  Company Number: SE-ROCHE-637529

PATIENT
  Age: 84 Year
  Sex: Female

DRUGS (2)
  1. XELODA [Suspect]
     Route: 065
     Dates: start: 20090301
  2. LEVOTHYROXINE SODIUM [Concomitant]

REACTIONS (1)
  - BLOOD CREATININE INCREASED [None]
